FAERS Safety Report 15183904 (Version 2)
Quarter: 2018Q3

REPORT INFORMATION
  Report Type: Spontaneous
  Country: PL (occurrence: PL)
  Receive Date: 20180723
  Receipt Date: 20180920
  Transmission Date: 20181010
  Serious: Yes (Death, Hospitalization, Other)
  Sender: FDA-Public Use
  Company Number: PL-SAKK-2018SA192240AA

PATIENT
  Age: 70 Year
  Sex: Male

DRUGS (4)
  1. ENOXAPARIN SODIUM. [Suspect]
     Active Substance: ENOXAPARIN SODIUM
     Indication: THROMBOSIS
     Route: 058
  2. ACETYLSALICYLIC ACID [Suspect]
     Active Substance: ASPIRIN
     Indication: ANTIPLATELET THERAPY
     Dosage: 75 MG
  3. EPTIFIBATIDE. [Concomitant]
     Active Substance: EPTIFIBATIDE
     Dosage: UNK
     Route: 041
  4. TICAGRELOR. [Suspect]
     Active Substance: TICAGRELOR
     Indication: ANTIPLATELET THERAPY
     Dosage: 180 MG

REACTIONS (8)
  - Skin necrosis [Unknown]
  - Haematoma [Unknown]
  - Drug ineffective [Unknown]
  - Cardiac arrest [Fatal]
  - Condition aggravated [Unknown]
  - Respiratory failure [Fatal]
  - Pneumonia [Unknown]
  - Ventricular hyperkinesia [Unknown]
